FAERS Safety Report 14880990 (Version 2)
Quarter: 2018Q2

REPORT INFORMATION
  Report Type: Spontaneous
  Country: BG (occurrence: BG)
  Receive Date: 20180511
  Receipt Date: 20180619
  Transmission Date: 20180711
  Serious: Yes (Hospitalization, Other)
  Sender: FDA-Public Use
  Company Number: BG-BAYER-2018-086626

PATIENT
  Age: 62 Year
  Sex: Male

DRUGS (1)
  1. NEXAVAR [Suspect]
     Active Substance: SORAFENIB
     Indication: HEPATOCELLULAR CARCINOMA
     Dosage: 400 MG, BID
     Dates: start: 20140814

REACTIONS (8)
  - Hepatocellular carcinoma [None]
  - Lymphadenopathy mediastinal [None]
  - Retroperitoneal lymphadenopathy [None]
  - Ischaemic stroke [Recovered/Resolved]
  - Diarrhoea [None]
  - Fatigue [None]
  - Hepatic fibrosis [None]
  - Speech disorder [Recovered/Resolved]

NARRATIVE: CASE EVENT DATE: 201502
